FAERS Safety Report 11068808 (Version 1)
Quarter: 2015Q2

REPORT INFORMATION
  Report Type: Spontaneous
  Country: US (occurrence: None)
  Receive Date: 20150424
  Receipt Date: 20150424
  Transmission Date: 20150821
  Serious: No
  Sender: FDA-Public Use
  Company Number: None

PATIENT
  Age: 62 Year
  Sex: Female

DRUGS (1)
  1. OTEZLA [Suspect]
     Active Substance: APREMILAST
     Indication: ARTHRITIS
     Route: 048
     Dates: start: 20150328

REACTIONS (3)
  - Nausea [None]
  - Diarrhoea [None]
  - Flank pain [None]

NARRATIVE: CASE EVENT DATE: 20150421
